FAERS Safety Report 4495819-5 (Version None)
Quarter: 2004Q4

REPORT INFORMATION
  Report Type: 
  Country: None (occurrence: None)
  Receive Date: 20041108
  Receipt Date: 20041102
  Transmission Date: 20050328
  Serious: Yes (Other)
  Sender: FDA-Public Use
  Company Number: US-GLAXOSMITHKLINE-A0532235A

PATIENT
  Sex: Male

DRUGS (2)
  1. ADVAIR [Suspect]
     Indication: ASTHMA
     Route: 055
  2. ALBUTEROL [Concomitant]

REACTIONS (2)
  - CHEST DISCOMFORT [None]
  - PULMONARY CONGESTION [None]
